FAERS Safety Report 7165625-1 (Version None)
Quarter: 2010Q4

REPORT INFORMATION
  Report Type: 
  Country: None (occurrence: None)
  Receive Date: 20101215
  Receipt Date: 20100103
  Transmission Date: 20110411
  Serious: No
  Sender: FDA-Public Use
  Company Number: US-AMGEN-KDL383506

PATIENT

DRUGS (3)
  1. ENBREL [Suspect]
     Indication: RHEUMATOID ARTHRITIS
     Dosage: 50 MG, QWK
     Route: 058
     Dates: start: 20080725
  2. HYDROXYCHLOROQUINE [Concomitant]
     Dosage: 200 MG, BID
     Dates: start: 20050501
  3. METHOTREXATE [Concomitant]
     Dosage: UNK UNK, UNK
     Dates: start: 20050601

REACTIONS (3)
  - BRONCHITIS [None]
  - IMPAIRED HEALING [None]
  - NASOPHARYNGITIS [None]
